FAERS Safety Report 12729887 (Version 1)
Quarter: 2016Q3

REPORT INFORMATION
  Report Type: Report from Study
  Country: US (occurrence: US)
  Receive Date: 20160909
  Receipt Date: 20160909
  Transmission Date: 20161109
  Serious: Yes (Death, Hospitalization, Other)
  Sender: FDA-Public Use
  Company Number: US-TEVA-670680USA

PATIENT
  Age: 59 Year
  Sex: Male

DRUGS (12)
  1. CLOZAPINE. [Suspect]
     Active Substance: CLOZAPINE
     Route: 065
  2. AMLODIPINE [Concomitant]
     Active Substance: AMLODIPINE BESYLATE
  3. VITAMIN C [Concomitant]
     Active Substance: ASCORBIC ACID
  4. LISINOPRIL. [Concomitant]
     Active Substance: LISINOPRIL
  5. TRAZODONE [Concomitant]
     Active Substance: TRAZODONE HYDROCHLORIDE
  6. ROBINUL [Concomitant]
     Active Substance: GLYCOPYRROLATE
  7. VIMPAT [Concomitant]
     Active Substance: LACOSAMIDE
  8. AMLACTIN [Concomitant]
     Active Substance: AMMONIUM LACTATE
  9. ALBUTEROL. [Concomitant]
     Active Substance: ALBUTEROL
  10. BUDESONIDE. [Concomitant]
     Active Substance: BUDESONIDE
  11. BROVANA [Concomitant]
     Active Substance: ARFORMOTEROL TARTRATE
  12. LACTULOSE. [Concomitant]
     Active Substance: LACTULOSE

REACTIONS (4)
  - Cardiac arrest [Fatal]
  - Lung carcinoma cell type unspecified stage III [Fatal]
  - Neutropenia [Fatal]
  - Psychotic disorder [Unknown]

NARRATIVE: CASE EVENT DATE: 2016
